FAERS Safety Report 7065090-9 (Version None)
Quarter: 2010Q4

REPORT INFORMATION
  Report Type: 
  Country: None (occurrence: None)
  Receive Date: 20101027
  Receipt Date: 19900223
  Transmission Date: 20110411
  Serious: Yes (Death, Life-Threatening, Hospitalization)
  Sender: FDA-Public Use
  Company Number: DE-ROCHE-900316124001

PATIENT
  Sex: Female
  Weight: 70 kg

DRUGS (6)
  1. INTERFERON ALFA-2A [Suspect]
     Indication: RENAL CANCER
     Route: 030
     Dates: start: 19900221, end: 19900221
  2. VINBLASTINE SULFATE [Suspect]
     Indication: RENAL CANCER
     Route: 042
     Dates: start: 19900219, end: 19900219
  3. THEOPHYLLINE [Concomitant]
     Route: 048
  4. BEROTEC [Concomitant]
     Route: 055
  5. BECLOMETHASONE DIPROPIONATE [Concomitant]
     Route: 055
  6. ISMO [Concomitant]
     Route: 048

REACTIONS (5)
  - ACUTE LEFT VENTRICULAR FAILURE [None]
  - CONVULSION [None]
  - PARAPARESIS [None]
  - PYREXIA [None]
  - SOMNOLENCE [None]
